FAERS Safety Report 24879169 (Version 1)
Quarter: 2025Q1

REPORT INFORMATION
  Report Type: Spontaneous
  Country: US (occurrence: None)
  Receive Date: 20250123
  Receipt Date: 20250123
  Transmission Date: 20250408
  Serious: Yes (Hospitalization)
  Sender: FDA-CTU
  Company Number: None

PATIENT
  Sex: Male

DRUGS (3)
  1. INLYTA [Suspect]
     Active Substance: AXITINIB
     Dosage: FREQUENCY : TWICE A DAY;?
     Route: 048
     Dates: start: 202212
  2. OCTREOTIDE 50 1 ML PF SVR [Concomitant]
  3. OCTREOTIDE 50 1 ML PF SVR [Concomitant]

REACTIONS (2)
  - Hypotension [None]
  - Blood creatinine increased [None]
